FAERS Safety Report 5077846-2 (Version None)
Quarter: 2006Q3

REPORT INFORMATION
  Report Type: 
  Country: None (occurrence: None)
  Receive Date: 20060807
  Receipt Date: 20060724
  Transmission Date: 20061208
  Serious: Yes (Hospitalization)
  Sender: FDA-Public Use
  Company Number: 2006091261

PATIENT
  Age: 40 Year
  Sex: Female

DRUGS (1)
  1. SULFASALAZINE [Suspect]
     Indication: COLITIS ULCERATIVE
     Dosage: 2 GRAM, RECTAL
     Route: 054
     Dates: start: 20060601, end: 20060701

REACTIONS (7)
  - CEREBRAL INFARCTION [None]
  - DEPRESSED LEVEL OF CONSCIOUSNESS [None]
  - EOSINOPHIL COUNT DECREASED [None]
  - GRIP STRENGTH DECREASED [None]
  - MENINGITIS ASEPTIC [None]
  - RASH [None]
  - WHITE BLOOD CELL COUNT DECREASED [None]
